FAERS Safety Report 6049202-1 (Version None)
Quarter: 2009Q1

REPORT INFORMATION
  Report Type: 
  Country: None (occurrence: None)
  Receive Date: 20090123
  Receipt Date: 20090105
  Transmission Date: 20090719
  Serious: Yes (Other)
  Sender: FDA-Public Use
  Company Number: US-WYE-H07538109

PATIENT
  Sex: Female
  Weight: 90.8 kg

DRUGS (5)
  1. PRISTIQ [Suspect]
     Indication: ANXIETY
     Route: 048
     Dates: start: 20090103
  2. PRISTIQ [Suspect]
     Indication: DEPRESSION
  3. ANTIVERT [Concomitant]
     Indication: INNER EAR DISORDER
     Dosage: UNKNOWN
  4. CYMBALTA [Suspect]
     Dosage: UNSPECIFIED
     Dates: end: 20090102
  5. AUGMENTIN '125' [Concomitant]
     Dosage: 875 MG

REACTIONS (5)
  - AGITATION [None]
  - DISTURBANCE IN ATTENTION [None]
  - THINKING ABNORMAL [None]
  - VIOLENCE-RELATED SYMPTOM [None]
  - VISION BLURRED [None]
